FAERS Safety Report 6173915-4 (Version None)
Quarter: 2009Q2

REPORT INFORMATION
  Report Type: 
  Country: None (occurrence: None)
  Receive Date: 20090429
  Receipt Date: 20090429
  Transmission Date: 20091009
  Serious: Yes (Hospitalization)
  Sender: FDA-Public Use
  Company Number: None

PATIENT
  Age: 69 Year
  Sex: Male
  Weight: 50.3493 kg

DRUGS (1)
  1. CARBOPLATIN [Suspect]
     Indication: SMALL CELL LUNG CANCER STAGE UNSPECIFIED
     Dosage: 370MG IV DRIP
     Route: 041
     Dates: start: 20081208, end: 20081208

REACTIONS (2)
  - ATRIAL FLUTTER [None]
  - HAEMODYNAMIC INSTABILITY [None]
